FAERS Safety Report 6161319-X (Version None)
Quarter: 2009Q2

REPORT INFORMATION
  Report Type: 
  Country: None (occurrence: None)
  Receive Date: 20090417
  Receipt Date: 20090417
  Transmission Date: 20091009
  Serious: Yes (Life-Threatening, Hospitalization)
  Sender: FDA-Public Use
  Company Number: None

PATIENT
  Age: 53 Year
  Sex: Female
  Weight: 90.7194 kg

DRUGS (1)
  1. PROVENTIL-HFA [Suspect]
     Indication: ASTHMA
     Dosage: 2 PUFFS EVERY 4 HOURS
     Dates: start: 20090101, end: 20090416

REACTIONS (4)
  - ASTHMA [None]
  - DRUG EFFECT DECREASED [None]
  - PNEUMONIA [None]
  - PRODUCT QUALITY ISSUE [None]
